FAERS Safety Report 6630310-9 (Version None)
Quarter: 2010Q1

REPORT INFORMATION
  Report Type: 
  Country: None (occurrence: None)
  Receive Date: 20100311
  Receipt Date: 20100302
  Transmission Date: 20100710
  Serious: Yes (Other)
  Sender: FDA-Public Use
  Company Number: CO-WYE-H13913410

PATIENT
  Age: 24 Year
  Sex: Female

DRUGS (1)
  1. PRISTIQ [Suspect]
     Indication: MAJOR DEPRESSION
     Route: 048
     Dates: start: 20100211, end: 20100227

REACTIONS (3)
  - MANIA [None]
  - SKIN LACERATION [None]
  - SUICIDE ATTEMPT [None]
